FAERS Safety Report 22773989 (Version 4)
Quarter: 2023Q4

REPORT INFORMATION
  Report Type: Report from Study
  Country: NL (occurrence: NL)
  Receive Date: 20230801
  Receipt Date: 20231010
  Transmission Date: 20240110
  Serious: Yes (Hospitalization)
  Sender: FDA-Public Use
  Company Number: NL-GENMAB-2023-01259

PATIENT
  Age: 63 Year
  Sex: Male
  Weight: 70 kg

DRUGS (22)
  1. EPCORITAMAB [Suspect]
     Active Substance: EPCORITAMAB
     Indication: Follicular lymphoma stage IV
     Dosage: C1D1
     Route: 058
     Dates: start: 20230626, end: 20230626
  2. EPCORITAMAB [Suspect]
     Active Substance: EPCORITAMAB
     Dosage: C1D8
     Route: 058
     Dates: start: 20230703, end: 20230703
  3. EPCORITAMAB [Suspect]
     Active Substance: EPCORITAMAB
     Dosage: C1D15
     Route: 058
     Dates: start: 20230710, end: 20230710
  4. EPCORITAMAB [Suspect]
     Active Substance: EPCORITAMAB
     Dosage: C1D22
     Route: 058
     Dates: start: 20230721, end: 20230721
  5. CLEMASTINE [Concomitant]
     Active Substance: CLEMASTINE
     Indication: Premedication
     Dosage: 2 MILLIGRAM, SINGLE
     Route: 042
     Dates: start: 20230721, end: 20230721
  6. ACETAMINOPHEN [Concomitant]
     Active Substance: ACETAMINOPHEN
     Indication: Premedication
     Dosage: 1000 MILLIGRAM, SINGLE
     Route: 048
     Dates: start: 20230721, end: 20230721
  7. DEXAMETHASONE [Concomitant]
     Active Substance: DEXAMETHASONE
     Indication: Premedication
     Dosage: 15 MILLIGRAM, SINGLE
     Route: 048
     Dates: start: 20230721, end: 20230721
  8. DEXAMETHASONE [Concomitant]
     Active Substance: DEXAMETHASONE
     Indication: Prophylaxis
     Dosage: 15 MILLIGRAM, QD
     Route: 048
     Dates: start: 20230627, end: 20230629
  9. DEXAMETHASONE [Concomitant]
     Active Substance: DEXAMETHASONE
     Dosage: 15 MILLIGRAM, QD
     Route: 048
     Dates: start: 20230704, end: 20230706
  10. DEXAMETHASONE [Concomitant]
     Active Substance: DEXAMETHASONE
     Dosage: 15 MILLIGRAM, QD
     Route: 048
     Dates: start: 20230711, end: 20230713
  11. DEXAMETHASONE [Concomitant]
     Active Substance: DEXAMETHASONE
     Dosage: 15 MILLIGRAM, QD
     Route: 048
     Dates: start: 20230722, end: 20230724
  12. ALLOPURINOL [Concomitant]
     Active Substance: ALLOPURINOL
     Indication: Prophylaxis
     Dosage: 300 MILLIGRAM, QD
     Route: 048
     Dates: start: 20230717, end: 20230731
  13. IMMUNE GLOBULIN NOS [Concomitant]
     Active Substance: IMMUNE GLOBULIN NOS
     Indication: Prophylaxis
     Dosage: 430 MILLIGRAM/KILOGRAM, SINGLE
     Route: 042
     Dates: start: 20230710, end: 20230710
  14. MOVICOLON [Concomitant]
     Active Substance: POLYETHYLENE GLYCOL 3350\POTASSIUM CHLORIDE\SODIUM BICARBONATE\SODIUM CHLORIDE
     Indication: Constipation
     Dosage: 1 POUCH, INTERMITTENT
     Route: 048
     Dates: start: 20230703
  15. NADROPARIN [Concomitant]
     Active Substance: NADROPARIN
     Indication: Prophylaxis
     Dosage: 28501 IE, QD
     Route: 058
     Dates: start: 20230717, end: 20230801
  16. NYSTATIN [Concomitant]
     Active Substance: NYSTATIN
     Indication: Candida infection
     Dosage: 500000 UNITS, QID
     Route: 048
     Dates: start: 20230710, end: 20230714
  17. VALACYCLOVIR HYDROCHLORIDE [Concomitant]
     Active Substance: VALACYCLOVIR HYDROCHLORIDE
     Indication: Candida infection
     Dosage: 1000 MILLIGRAM, BID
     Route: 048
     Dates: start: 20230717, end: 20230724
  18. KIOVIG [Concomitant]
     Active Substance: HUMAN IMMUNOGLOBULIN G
     Indication: Prophylaxis
     Dosage: 28 GRAM, MONTHLY
     Route: 042
     Dates: start: 20230723, end: 20230723
  19. METFORMIN [Concomitant]
     Active Substance: METFORMIN HYDROCHLORIDE
     Indication: Hyperglycaemia
     Dosage: 1000 MILLIGRAM, BID
     Route: 048
     Dates: start: 20230801
  20. POLYETHYLENE GLYCOLS [Concomitant]
     Active Substance: POLYETHYLENE GLYCOLS
     Indication: Prophylaxis
     Dosage: 1 DOSAGE FORM (CAPSULE), QD
     Route: 048
     Dates: start: 20230803
  21. PANTOPRAZOLE [Concomitant]
     Active Substance: PANTOPRAZOLE
     Indication: Prophylaxis
     Dosage: 20 MILLIGRAM, QD
     Route: 048
     Dates: start: 20230803
  22. INSULIN NOS [Concomitant]
     Active Substance: INSULIN NOS
     Indication: Hyperglycaemia
     Dosage: QD
     Route: 058
     Dates: start: 20230803

REACTIONS (2)
  - Pneumonia viral [Recovered/Resolved]
  - Chronic obstructive pulmonary disease [Recovered/Resolved]

NARRATIVE: CASE EVENT DATE: 20230711
